FAERS Safety Report 9157301 (Version 1)
Quarter: 2013Q1

REPORT INFORMATION
  Report Type: Spontaneous
  Country: GB (occurrence: GB)
  Receive Date: 20130312
  Receipt Date: 20130312
  Transmission Date: 20140127
  Serious: Yes (Other)
  Sender: FDA-Public Use
  Company Number: GB-GALDERMA-GB13000792

PATIENT
  Age: 35 Year
  Sex: Female
  Weight: 77 kg

DRUGS (4)
  1. DOXYCYCLINE [Suspect]
     Dates: start: 20130212
  2. LANTUS [Concomitant]
     Dates: start: 20121122
  3. NOVORAPID [Concomitant]
     Dates: start: 20130102
  4. YASMIN [Concomitant]
     Dates: start: 20121102, end: 20130125

REACTIONS (1)
  - Rash macular [Recovering/Resolving]
